FAERS Safety Report 7684050-8 (Version None)
Quarter: 2011Q3

REPORT INFORMATION
  Report Type: 
  Country: None (occurrence: None)
  Receive Date: 20110815
  Receipt Date: 20110810
  Transmission Date: 20111222
  Serious: Yes (Life-Threatening)
  Sender: FDA-Public Use
  Company Number: FR-PFIZER INC-2011183328

PATIENT
  Age: 57 Year
  Sex: Male

DRUGS (3)
  1. GEMTUZUMAB OZOGAMICIN [Suspect]
     Indication: ACUTE LEUKAEMIA
     Dosage: 11 MG, 1X/DAY
     Route: 042
     Dates: start: 20080922, end: 20080922
  2. CERUBIDINE [Suspect]
     Indication: ACUTE LEUKAEMIA
     Dosage: 114 MG, 1X/DAY
     Route: 042
     Dates: start: 20080919, end: 20080921
  3. CYTARABINE [Suspect]
     Indication: LEUKAEMIA
     Dosage: 380 MG, 1X/DAY
     Route: 042
     Dates: start: 20080919, end: 20080925

REACTIONS (1)
  - LUNG DISORDER [None]
